FAERS Safety Report 4724662-4 (Version None)
Quarter: 2005Q3

REPORT INFORMATION
  Report Type: 
  Country: None (occurrence: None)
  Receive Date: 20050719
  Receipt Date: 20050719
  Transmission Date: 20060218
  Serious: Yes (Hospitalization, Other)
  Sender: FDA-Public Use
  Company Number: None

PATIENT
  Sex: Male
  Weight: 74 kg

DRUGS (1)
  1. CISPLATIN [Suspect]
     Indication: NASOPHARYNGEAL CANCER
     Dosage: SEE IMAGE
     Route: 042
     Dates: start: 20050620, end: 20050620

REACTIONS (4)
  - CHILLS [None]
  - DYSPHAGIA [None]
  - ORAL CANDIDIASIS [None]
  - PYREXIA [None]
